FAERS Safety Report 11009201 (Version 2)
Quarter: 2015Q2

REPORT INFORMATION
  Report Type: Spontaneous
  Country: US (occurrence: US)
  Receive Date: 20150410
  Receipt Date: 20150610
  Transmission Date: 20150821
  Serious: No
  Sender: FDA-Public Use
  Company Number: US-PFIZER INC-2015119117

PATIENT
  Age: 82 Year
  Sex: Female
  Weight: 74.83 kg

DRUGS (8)
  1. METHENAMINE HIPPURATE. [Concomitant]
     Active Substance: METHENAMINE HIPPURATE
     Dosage: 1 G, 1X/DAY
     Route: 048
  2. NEURONTIN [Suspect]
     Active Substance: GABAPENTIN
     Indication: NEUROPATHY PERIPHERAL
     Dosage: 1800 MG, UNK
  3. ENALAPRIL/HYDROCHLOROTIAZIDE [Concomitant]
     Dosage: UNK
  4. NEURONTIN [Suspect]
     Active Substance: GABAPENTIN
     Indication: NEUROPATHY PERIPHERAL
     Dosage: 1200 MG, UNK
     Dates: start: 2000
  5. NEURONTIN [Suspect]
     Active Substance: GABAPENTIN
     Indication: NEUROPATHY PERIPHERAL
     Dosage: 1800 MG, 1X/DAY
  6. GABAPENTIN. [Suspect]
     Active Substance: GABAPENTIN
     Indication: NEUROPATHY PERIPHERAL
  7. GABAPENTIN. [Suspect]
     Active Substance: GABAPENTIN
     Indication: NEUROPATHY PERIPHERAL
     Dosage: 1800 MG, UNK
     Route: 048
  8. PREMARIN VAGINAL [Concomitant]
     Active Substance: ESTROGENS, CONJUGATED
     Dosage: 2 G, 2X/DAY
     Route: 067

REACTIONS (14)
  - Drug ineffective [Unknown]
  - Burning sensation [Not Recovered/Not Resolved]
  - Burning sensation [Unknown]
  - Pain in extremity [Unknown]
  - Gait disturbance [Unknown]
  - Insomnia [Unknown]
  - Condition aggravated [Not Recovered/Not Resolved]
  - Neuropathy peripheral [Not Recovered/Not Resolved]
  - Frustration [Not Recovered/Not Resolved]
  - Fall [Unknown]
  - Pain [Unknown]
  - Weight increased [Unknown]
  - Middle insomnia [Not Recovered/Not Resolved]
  - Somnolence [Unknown]
